FAERS Safety Report 12238064 (Version 1)
Quarter: 2016Q2

REPORT INFORMATION
  Report Type: Spontaneous
  Country: US (occurrence: None)
  Receive Date: 20160404
  Receipt Date: 20160404
  Transmission Date: 20160815
  Serious: Yes (Other)
  Sender: FDA-Public Use
  Company Number: None

PATIENT
  Age: 19 Year
  Sex: Female
  Weight: 88.45 kg

DRUGS (1)
  1. MEDROXYPROGESTERONE, 150 ML GREENSTONE BRAND [Suspect]
     Active Substance: MEDROXYPROGESTERONE ACETATE
     Indication: CONTRACEPTION
     Dosage: 1 INJECTION(S) 3 MONTHS INTO THE MUSCLE
     Route: 030

REACTIONS (6)
  - Thrombosis [None]
  - Menorrhagia [None]
  - Blood glucose decreased [None]
  - Ovarian cyst [None]
  - Loss of employment [None]
  - Dizziness [None]

NARRATIVE: CASE EVENT DATE: 20151207
